FAERS Safety Report 8160306-X (Version None)
Quarter: 2012Q1

REPORT INFORMATION
  Report Type: 
  Country: None (occurrence: None)
  Receive Date: 20120223
  Receipt Date: 20120223
  Transmission Date: 20120608
  Serious: No
  Sender: FDA-Public Use
  Company Number: None

PATIENT
  Age: 5 Year
  Sex: Male
  Weight: 22.679 kg

DRUGS (1)
  1. CLARITIN [Suspect]
     Indication: MULTIPLE ALLERGIES
     Route: 048
     Dates: start: 20050801, end: 20060301

REACTIONS (2)
  - DEPRESSION [None]
  - ANXIETY [None]
